FAERS Safety Report 7610320-5 (Version None)
Quarter: 2011Q3

REPORT INFORMATION
  Report Type: 
  Country: None (occurrence: None)
  Receive Date: 20110706
  Receipt Date: 20110624
  Transmission Date: 20111222
  Serious: Yes (Other)
  Sender: FDA-Public Use
  Company Number: AUR-APL-2011-02837

PATIENT
  Age: 80 Year
  Sex: Male

DRUGS (10)
  1. VALSARTAN [Concomitant]
  2. RANITIDINE [Concomitant]
  3. SPIRONOLACTONE [Concomitant]
  4. BUMETANIDE [Concomitant]
  5. ASPIRIN [Concomitant]
  6. SIMVASTATIN [Suspect]
     Indication: PRODUCT USED FOR UNKNOWN INDICATION
     Dosage: 40 MG (40 MG, 1 IN 1 D);
  7. HEPARIN [Concomitant]
  8. BISOPROLOL FUMARATE [Concomitant]
  9. AMIODARONE HCL [Suspect]
     Indication: PRODUCT USED FOR UNKNOWN INDICATION
     Dosage: 200 MG, 1 D,
  10. INSULIN [Concomitant]

REACTIONS (7)
  - OEDEMA PERIPHERAL [None]
  - HYPERKALAEMIA [None]
  - DRUG INTERACTION [None]
  - RHABDOMYOLYSIS [None]
  - ATRIAL FIBRILLATION [None]
  - MYOPATHY TOXIC [None]
  - PERIPHERAL MOTOR NEUROPATHY [None]
